FAERS Safety Report 7395600-3 (Version None)
Quarter: 2011Q2

REPORT INFORMATION
  Report Type: 
  Country: None (occurrence: None)
  Receive Date: 20110405
  Receipt Date: 20110329
  Transmission Date: 20111010
  Serious: Yes (Other)
  Sender: FDA-Public Use
  Company Number: JP-PFIZER INC-2011052444

PATIENT
  Age: 30 Year
  Sex: Male

DRUGS (1)
  1. SALAZOPYRIN [Suspect]
     Indication: COLITIS ULCERATIVE
     Dosage: 4500 MG, DAILY
     Route: 048
     Dates: start: 20070101

REACTIONS (2)
  - SCLERAL DISCOLOURATION [None]
  - YELLOW SKIN [None]
